FAERS Safety Report 5047612-2 (Version None)
Quarter: 2006Q3

REPORT INFORMATION
  Report Type: 
  Country: None (occurrence: None)
  Receive Date: 20060705
  Receipt Date: 20060612
  Transmission Date: 20061208
  Serious: Yes (Other)
  Sender: FDA-Public Use
  Company Number: 2006-06-1796

PATIENT

DRUGS (1)
  1. CLARITIN [Suspect]
     Dosage: QD ORAL
     Route: 048
     Dates: start: 20060608, end: 20060610

REACTIONS (1)
  - BLINDNESS UNILATERAL [None]
